FAERS Safety Report 22624355 (Version 1)
Quarter: 2023Q2

REPORT INFORMATION
  Report Type: Spontaneous
  Country: US (occurrence: None)
  Receive Date: 20230619
  Receipt Date: 20230619
  Transmission Date: 20230722
  Serious: No
  Sender: FDA-Public Use
  Company Number: None

PATIENT
  Sex: 0

DRUGS (2)
  1. RISPERDAL [Suspect]
     Active Substance: RISPERIDONE
  2. OLANZAPINE [Suspect]
     Active Substance: OLANZAPINE

REACTIONS (4)
  - Irritability [None]
  - Insomnia [None]
  - Weight increased [None]
  - Mood altered [None]
